FAERS Safety Report 9841901 (Version 2)
Quarter: 2014Q1

REPORT INFORMATION
  Report Type: Spontaneous
  Country: MY (occurrence: MY)
  Receive Date: 20140124
  Receipt Date: 20140326
  Transmission Date: 20141002
  Serious: Yes (Other)
  Sender: FDA-Public Use
  Company Number: MY-PFIZER INC-2014020062

PATIENT
  Age: 45 Year
  Sex: Male
  Weight: 57 kg

DRUGS (3)
  1. DILANTIN [Suspect]
     Indication: CONVULSION
     Dosage: 300 MG, DAILY
     Route: 048
     Dates: start: 20120507, end: 20120610
  2. WARFARIN [Concomitant]
     Indication: AORTIC VALVE REPLACEMENT
     Dosage: 5 MG, DAILY
     Route: 048
     Dates: start: 199302, end: 20120608
  3. PIRITON [Concomitant]
     Indication: RASH
     Dosage: 4 MG, 3X/DAY
     Dates: start: 20120611

REACTIONS (4)
  - Rash maculo-papular [Recovered/Resolved]
  - Petechiae [Recovered/Resolved]
  - Erythema [Recovered/Resolved]
  - Scab [Recovered/Resolved]
